FAERS Safety Report 14591711 (Version 1)
Quarter: 2018Q1

REPORT INFORMATION
  Report Type: Spontaneous
  Country: US (occurrence: US)
  Receive Date: 20180301
  Receipt Date: 20180301
  Transmission Date: 20180509
  Serious: Yes (Death)
  Sender: FDA-Public Use
  Company Number: None

PATIENT
  Age: 70 Year
  Sex: Female
  Weight: 82.35 kg

DRUGS (11)
  1. PROMETHAZINE [Concomitant]
     Active Substance: PROMETHAZINE\PROMETHAZINE HYDROCHLORIDE
  2. MAGNESIUM OXIDE. [Concomitant]
     Active Substance: MAGNESIUM OXIDE
  3. CIPROFLOXACIN. [Concomitant]
     Active Substance: CIPROFLOXACIN
  4. FLUCONAZOLE. [Concomitant]
     Active Substance: FLUCONAZOLE
  5. AMICAR [Suspect]
     Active Substance: AMINOCAPROIC ACID
     Indication: THROMBOCYTOPENIA
     Dosage: ?          OTHER FREQUENCY:Q6H;?
     Route: 048
  6. MULTIVITAMIN MEN [Concomitant]
  7. PROMACTA [Concomitant]
     Active Substance: ELTROMBOPAG OLAMINE
  8. LOPRESSOR [Concomitant]
     Active Substance: METOPROLOL TARTRATE
  9. AMLODIPINE [Concomitant]
     Active Substance: AMLODIPINE BESYLATE
  10. CYCLOSPORINE. [Concomitant]
     Active Substance: CYCLOSPORINE
  11. DILTIAZEM ER [Concomitant]
     Active Substance: DILTIAZEM

REACTIONS (1)
  - Disease progression [None]
